FAERS Safety Report 18547782 (Version 1)
Quarter: 2020Q4

REPORT INFORMATION
  Report Type: Spontaneous
  Country: US (occurrence: US)
  Receive Date: 20201125
  Receipt Date: 20201125
  Transmission Date: 20210114
  Serious: No
  Sender: FDA-Public Use
  Company Number: US-PFIZER INC-2020463538

PATIENT
  Age: 69 Year
  Sex: Female

DRUGS (1)
  1. IBRANCE [Suspect]
     Active Substance: PALBOCICLIB
     Dosage: 125 MG, 1X/DAY (LBRANCE 125MG, 1 TABLET QD (ONCE A DAY) FOR 21 DAYS)
     Dates: start: 20200530

REACTIONS (1)
  - White blood cell count decreased [Recovered/Resolved]
